FAERS Safety Report 5136370-9 (Version None)
Quarter: 2006Q4

REPORT INFORMATION
  Report Type: 
  Country: None (occurrence: None)
  Receive Date: 20061027
  Receipt Date: 20061023
  Transmission Date: 20070319
  Serious: Yes (Hospitalization)
  Sender: FDA-Public Use
  Company Number: GB-SANOFI-SYNTHELABO-F01200602185

PATIENT
  Sex: Male
  Weight: 62 kg

DRUGS (7)
  1. LANSOPRAZOLE [Concomitant]
     Dosage: 80 MG BY MOUTH DAILY
  2. LARGACTIL [Concomitant]
     Dosage: 25 MG BY MOUTH DAILY
  3. ATENOLOL [Concomitant]
     Dosage: 100 MG BY MOUTH DAILY
  4. PERINDOPRIL ERBUMINE [Concomitant]
     Dosage: 4 MG BY MOUTH DAILY
  5. TEMAZEPAM [Concomitant]
     Dosage: 10 MG BY MOUTH DAILY
  6. CAPECITABINE [Suspect]
     Indication: COLORECTAL CANCER METASTATIC
     Dosage: 1000 MG/M2 BID DAYS 1-14 1650 MG
     Route: 048
     Dates: start: 20060731
  7. OXALIPLATIN [Suspect]
     Indication: COLORECTAL CANCER METASTATIC
     Route: 041
     Dates: start: 20060731, end: 20060731

REACTIONS (3)
  - DYSARTHRIA [None]
  - GAIT DISTURBANCE [None]
  - TRANSIENT ISCHAEMIC ATTACK [None]
